FAERS Safety Report 5594688-X (Version None)
Quarter: 2008Q1

REPORT INFORMATION
  Report Type: 
  Country: None (occurrence: None)
  Receive Date: 20080115
  Receipt Date: 20080108
  Transmission Date: 20080703
  Serious: Yes (Other)
  Sender: FDA-Public Use
  Company Number: CHNY2008NL00483

PATIENT
  Sex: Male

DRUGS (1)
  1. NICOTINE [Suspect]
     Indication: SMOKING CESSATION THERAPY
     Dosage: UP TO 24 GUMS A DAY, CHEWED
     Dates: start: 20040101

REACTIONS (2)
  - DRUG DEPENDENCE [None]
  - INCORRECT DRUG ADMINISTRATION DURATION [None]
